FAERS Safety Report 5047548-7 (Version None)
Quarter: 2006Q3

REPORT INFORMATION
  Report Type: 
  Country: None (occurrence: None)
  Receive Date: 20060705
  Receipt Date: 20060705
  Transmission Date: 20061208
  Serious: No
  Sender: FDA-Public Use
  Company Number: None

PATIENT
  Age: 41 Year
  Sex: Female
  Weight: 65.7716 kg

DRUGS (4)
  1. AMBIEN [Suspect]
     Indication: INSOMNIA
     Dosage: 1/2 PILL ONCE PO
     Route: 048
     Dates: start: 20060613, end: 20060613
  2. MIDRIN CARACO [Suspect]
     Indication: MIGRAINE
     Dosage: 2 TABLETS ONCE PO
     Route: 048
     Dates: start: 20060613, end: 20060613
  3. ZANAFLEX [Concomitant]
  4. IBUPROFIN [Concomitant]

REACTIONS (4)
  - DEPRESSED LEVEL OF CONSCIOUSNESS [None]
  - DRUG INEFFECTIVE [None]
  - SLEEP TERROR [None]
  - TEMPERATURE REGULATION DISORDER [None]
